FAERS Safety Report 7438682-2 (Version None)
Quarter: 2011Q2

REPORT INFORMATION
  Report Type: 
  Country: None (occurrence: None)
  Receive Date: 20110426
  Receipt Date: 20110419
  Transmission Date: 20111010
  Serious: Yes (Death)
  Sender: FDA-Public Use
  Company Number: US-CELGENEUS-163-21880-11042562

PATIENT
  Age: 75 Year
  Sex: Male

DRUGS (20)
  1. REVLIMID [Suspect]
     Dosage: 10 MILLIGRAM
     Route: 048
     Dates: start: 20101101, end: 20101201
  2. DILTIAZEM [Concomitant]
     Route: 065
  3. LACTULOSE [Concomitant]
     Route: 065
  4. METHADONE [Concomitant]
     Route: 065
  5. BISACODYL [Concomitant]
     Route: 065
  6. DEXAMETHASONE [Concomitant]
     Route: 065
     Dates: start: 20100801
  7. FUROSEMIDE [Concomitant]
     Route: 065
  8. LORAZEPAM [Concomitant]
     Route: 065
  9. METOPROLOL [Concomitant]
     Route: 065
  10. POTASSIUM CHLORIDE [Concomitant]
     Route: 065
  11. REVLIMID [Suspect]
     Dosage: 5 MILLIGRAM
     Route: 048
     Dates: start: 20100801
  12. DEXAMETHASONE [Concomitant]
     Indication: MULTIPLE MYELOMA
     Route: 065
     Dates: start: 20080301, end: 20081101
  13. PREDNISONE [Concomitant]
     Indication: MULTIPLE MYELOMA
     Route: 065
     Dates: start: 20081101, end: 20090301
  14. TRAMADOL [Concomitant]
     Route: 065
  15. WARFARIN [Concomitant]
     Route: 065
  16. MORPHINE [Concomitant]
     Route: 065
  17. REVLIMID [Suspect]
     Indication: MULTIPLE MYELOMA
     Dosage: 15 MILLIGRAM
     Route: 048
     Dates: start: 20080301, end: 20081101
  18. SIMVASTATIN [Concomitant]
     Route: 065
  19. FAMOTIDINE [Concomitant]
     Route: 065
  20. FINASTERIDE [Concomitant]
     Route: 065

REACTIONS (1)
  - MULTIPLE MYELOMA [None]
